FAERS Safety Report 20203446 (Version 1)
Quarter: 2021Q4

REPORT INFORMATION
  Report Type: Spontaneous
  Country: US (occurrence: US)
  Receive Date: 20211218
  Receipt Date: 20211218
  Transmission Date: 20220303
  Serious: No
  Sender: FDA-Public Use
  Company Number: US-JNJFOC-20211227857

PATIENT
  Sex: Female

DRUGS (1)
  1. MENS ROGAINE EXTRA STRENGTH [Suspect]
     Active Substance: MINOXIDIL
     Indication: Alopecia
     Route: 061

REACTIONS (6)
  - Product residue present [Unknown]
  - Hair growth abnormal [Unknown]
  - Application site irritation [Unknown]
  - Product use issue [Unknown]
  - Intentional product misuse [Unknown]
  - Contraindicated product administered [Unknown]
